FAERS Safety Report 10191767 (Version 1)
Quarter: 2014Q2

REPORT INFORMATION
  Report Type: Spontaneous
  Country: US (occurrence: US)
  Receive Date: 20140523
  Receipt Date: 20140523
  Transmission Date: 20141212
  Serious: Yes (Other)
  Sender: FDA-Public Use
  Company Number: US-ACTAVIS-2014-10754

PATIENT
  Sex: Male

DRUGS (6)
  1. CARBAMAZEPINE (AELLC) [Suspect]
     Indication: AUTISM
     Dosage: UNKNOWN
     Route: 065
  2. PAROXETINE [Concomitant]
     Indication: AUTISM
     Dosage: UNK
     Route: 065
  3. SERTRALINE [Concomitant]
     Indication: AUTISM
     Dosage: UNK
     Route: 065
  4. CLONAZEPAM [Concomitant]
     Indication: AUTISM
     Dosage: UNK
     Route: 065
  5. CLONIDINE [Concomitant]
     Indication: AUTISM
     Dosage: UNK
     Route: 065
  6. VALPROATE [Concomitant]
     Indication: AUTISM
     Dosage: UNK
     Route: 065

REACTIONS (4)
  - Thrombocytopenia [Unknown]
  - Increased tendency to bruise [Unknown]
  - Gastrointestinal disorder [Unknown]
  - Irritability [Unknown]
